FAERS Safety Report 17410952 (Version 1)
Quarter: 2020Q1

REPORT INFORMATION
  Report Type: Spontaneous
  Country: US (occurrence: US)
  Receive Date: 20200212
  Receipt Date: 20200212
  Transmission Date: 20200409
  Serious: No
  Sender: FDA-Public Use
  Company Number: US-TEIKOKU PHARMA USA-TPU2019-00701

PATIENT
  Sex: Female
  Weight: 65.83 kg

DRUGS (11)
  1. PERCOCET [Concomitant]
     Active Substance: ACETAMINOPHEN\OXYCODONE HYDROCHLORIDE
     Indication: PAIN
     Dosage: 10/325
     Dates: start: 2009
  2. VITAMIN D [Concomitant]
     Active Substance: VITAMIN D NOS
  3. TOPAMAX [Concomitant]
     Active Substance: TOPIRAMATE
     Indication: NERVE BLOCK
     Dates: start: 2004
  4. SOMA [Concomitant]
     Active Substance: CARISOPRODOL
     Indication: MYALGIA
  5. FLEXERIL [Concomitant]
     Active Substance: CYCLOBENZAPRINE HYDROCHLORIDE
     Indication: MYALGIA
     Dates: start: 2007
  6. GABAPENTIN. [Concomitant]
     Active Substance: GABAPENTIN
     Indication: NEURALGIA
     Dates: start: 201902
  7. EFFEXOR XR [Concomitant]
     Active Substance: VENLAFAXINE HYDROCHLORIDE
     Indication: NERVE BLOCK
     Dates: start: 2004
  8. EMBREL SURE CLICK INJECTOR [Concomitant]
     Indication: RHEUMATOID ARTHRITIS
     Dates: start: 2009
  9. LIDOCAINE PATCH [Suspect]
     Active Substance: LIDOCAINE
     Indication: PAIN
     Dosage: HANDS, WRISTS, LOWER AND UPPER ARMS, RIGHT HAND AND ARM,CHEST FRONT, TOP OF SHOULDERS FRONT,LOWER AN
     Route: 061
     Dates: start: 2009
  10. VITAMIN D [Concomitant]
     Active Substance: VITAMIN D NOS
  11. BIOTIN [Concomitant]
     Active Substance: BIOTIN
     Indication: ONYCHOCLASIS

REACTIONS (1)
  - Wrong technique in product usage process [Unknown]
